FAERS Safety Report 7645981-8 (Version None)
Quarter: 2011Q3

REPORT INFORMATION
  Report Type: 
  Country: None (occurrence: None)
  Receive Date: 20110729
  Receipt Date: 20110720
  Transmission Date: 20111222
  Serious: Yes (Other)
  Sender: FDA-Public Use
  Company Number: GB-ASTRAZENECA-2011SE41732

PATIENT
  Age: 16 Year
  Sex: Female
  Weight: 63 kg

DRUGS (5)
  1. SEROQUEL [Suspect]
     Dosage: 20 TABLETS OF 100 MG
     Route: 048
  2. SEROQUEL [Suspect]
     Dosage: 20 TABLETS OF 100 MG
     Route: 048
  3. SEROQUEL [Suspect]
     Indication: OBSESSIVE-COMPULSIVE DISORDER
     Dosage: 50 MG IN THE MORNING AND 150 MG AT NIGHT
     Route: 048
  4. SEROQUEL [Suspect]
     Indication: PSYCHOTIC BEHAVIOUR
     Dosage: 50 MG IN THE MORNING AND 150 MG AT NIGHT
     Route: 048
  5. SERTRALINE HYDROCHLORIDE [Suspect]
     Dosage: 20 TABLETS OF 50 MG
     Route: 048

REACTIONS (2)
  - OVERDOSE [None]
  - OFF LABEL USE [None]
